FAERS Safety Report 8358190-4 (Version None)
Quarter: 2012Q2

REPORT INFORMATION
  Report Type: 
  Country: None (occurrence: None)
  Receive Date: 20120514
  Receipt Date: 20120504
  Transmission Date: 20120825
  Serious: Yes (Hospitalization, Congenital Anomaly)
  Sender: FDA-Public Use
  Company Number: US-GLAXOSMITHKLINE-A0977188A

PATIENT
  Sex: Female
  Weight: 2.7 kg

DRUGS (2)
  1. PAXIL [Suspect]
     Indication: BIPOLAR DISORDER
     Route: 064
  2. DEPAKOTE [Concomitant]

REACTIONS (9)
  - HYDROCEPHALUS [None]
  - TALIPES [None]
  - FOETAL EXPOSURE DURING PREGNANCY [None]
  - CONGENITAL HIP DEFORMITY [None]
  - VESICOURETERIC REFLUX [None]
  - VENTRICULAR SEPTAL DEFECT [None]
  - SPINA BIFIDA [None]
  - NEUROGENIC BLADDER [None]
  - NEUROGENIC BOWEL [None]
